FAERS Safety Report 18973212 (Version 3)
Quarter: 2021Q1

REPORT INFORMATION
  Report Type: Report from Study
  Country: US (occurrence: US)
  Receive Date: 20210305
  Receipt Date: 20210325
  Transmission Date: 20210420
  Serious: No
  Sender: FDA-Public Use
  Company Number: NVSC2021US052006

PATIENT
  Sex: Male

DRUGS (1)
  1. ENTRESTO [Suspect]
     Active Substance: SACUBITRIL\VALSARTAN
     Indication: CARDIAC FAILURE
     Dosage: UNK UNK, UNKNOWN
     Route: 065
     Dates: start: 20210224

REACTIONS (5)
  - Fall [Unknown]
  - Joint swelling [Unknown]
  - Weight increased [Unknown]
  - Skin discolouration [Not Recovered/Not Resolved]
  - Arthralgia [Unknown]
